FAERS Safety Report 4733333-X (Version None)
Quarter: 2005Q3

REPORT INFORMATION
  Report Type: 
  Country: None (occurrence: None)
  Receive Date: 20050725
  Receipt Date: 20041221
  Transmission Date: 20060218
  Serious: Yes (Death, Other)
  Sender: FDA-Public Use
  Company Number: USA-2004-0018123

PATIENT
  Age: 44 Year
  Sex: Female
  Weight: 81.6 kg

DRUGS (11)
  1. MS CONTIN [Suspect]
  2. PERCOCET [Suspect]
  3. ACETAMINOPHEN [Suspect]
  4. GABAPENTIN [Suspect]
  5. PAROXETINE HCL [Suspect]
  6. ALPRAZOLAM [Suspect]
  7. ZIPRASIDONE HCL [Suspect]
  8. TRAZODONE (TRAZODONE) [Suspect]
  9. ATROPINE [Suspect]
  10. VALPROIC ACID [Suspect]
  11. LODINE [Concomitant]

REACTIONS (3)
  - ACCIDENTAL OVERDOSE [None]
  - DRUG ABUSER [None]
  - MULTIPLE DRUG OVERDOSE [None]
